FAERS Safety Report 24352284 (Version 1)
Quarter: 2024Q3

REPORT INFORMATION
  Report Type: Spontaneous
  Country: FR (occurrence: FR)
  Receive Date: 20240923
  Receipt Date: 20240923
  Transmission Date: 20241017
  Serious: Yes (Other)
  Sender: FRESENIUS KABI
  Company Number: FR-FreseniusKabi-FK202413889

PATIENT
  Age: 5 Month
  Sex: Female
  Weight: 6.6 kg

DRUGS (2)
  1. SMOFLIPID [Suspect]
     Active Substance: FISH OIL\MEDIUM-CHAIN TRIGLYCERIDES\OLIVE OIL\SOYBEAN OIL
     Indication: Parenteral nutrition
     Dosage: FORM:  EMULSION FOR INFUSION?ROUTE: INTRACEREBRAL
     Dates: start: 20240424, end: 20240424
  2. AMINO ACIDS\DEXTROSE\ELECTROLYTES NOS [Suspect]
     Active Substance: AMINO ACIDS\DEXTROSE\ELECTROLYTES NOS
     Indication: Parenteral nutrition
     Dosage: ROUTE: INTRACEREBRAL
     Dates: start: 20240424, end: 20240424

REACTIONS (2)
  - Incorrect route of product administration [Recovered/Resolved]
  - No adverse event [Unknown]

NARRATIVE: CASE EVENT DATE: 20240424
